FAERS Safety Report 5909333-0 (Version None)
Quarter: 2008Q4

REPORT INFORMATION
  Report Type: 
  Country: None (occurrence: None)
  Receive Date: 20081002
  Receipt Date: 20080917
  Transmission Date: 20090506
  Serious: Yes (Other)
  Sender: FDA-Public Use
  Company Number: 2008079947

PATIENT
  Age: 82 Year
  Sex: Male

DRUGS (1)
  1. DALTEPARIN SODIUM [Suspect]
     Indication: PULMONARY EMBOLISM
     Dosage: 15000 I.U. (15000 I.U.)

REACTIONS (2)
  - DEVICE MALFUNCTION [None]
  - UNDERDOSE [None]
